FAERS Safety Report 21138759 (Version 2)
Quarter: 2022Q3

REPORT INFORMATION
  Report Type: Spontaneous
  Country: US (occurrence: US)
  Receive Date: 20220727
  Receipt Date: 20220803
  Transmission Date: 20221027
  Serious: Yes (Other)
  Sender: FDA-Public Use
  Company Number: US-GE HEALTHCARE-2022CSU005005

PATIENT
  Age: 20 Year
  Sex: Female
  Weight: 82 kg

DRUGS (3)
  1. OMNIPAQUE [Suspect]
     Active Substance: IOHEXOL
     Indication: Computerised tomogram abdomen
     Dosage: 100 ML, SINGLE
     Route: 042
     Dates: start: 20220716, end: 20220716
  2. OMNIPAQUE [Suspect]
     Active Substance: IOHEXOL
     Indication: Computerised tomogram pelvis
  3. OMNIPAQUE [Suspect]
     Active Substance: IOHEXOL
     Indication: Infection

REACTIONS (4)
  - Sneezing [Recovered/Resolved]
  - Nasal congestion [Recovered/Resolved]
  - Throat tightness [Recovered/Resolved]
  - Erythema [Recovered/Resolved]

NARRATIVE: CASE EVENT DATE: 20220716
